FAERS Safety Report 16706065 (Version 1)
Quarter: 2019Q3

REPORT INFORMATION
  Report Type: Spontaneous
  Country: US (occurrence: US)
  Receive Date: 20190815
  Receipt Date: 20190815
  Transmission Date: 20191004
  Serious: No
  Sender: FDA-Public Use
  Company Number: US-PFIZER INC-2019345765

PATIENT
  Age: 60 Year
  Sex: Male
  Weight: 72.57 kg

DRUGS (1)
  1. DIAZEPAM. [Suspect]
     Active Substance: DIAZEPAM
     Indication: POLYNEUROPATHY
     Dosage: 5 MG, 2X/DAY [5MG TWICE A DAY]
     Dates: start: 2019

REACTIONS (1)
  - Drug ineffective for unapproved indication [Unknown]
